FAERS Safety Report 22585990 (Version 1)
Quarter: 2023Q2

REPORT INFORMATION
  Report Type: Spontaneous
  Country: FR (occurrence: FR)
  Receive Date: 20230610
  Receipt Date: 20230610
  Transmission Date: 20230722
  Serious: Yes (Hospitalization)
  Sender: FDA-Public Use
  Company Number: None

PATIENT
  Age: 67 Year
  Sex: Male
  Weight: 72 kg

DRUGS (3)
  1. RYDAPT [Suspect]
     Active Substance: MIDOSTAURIN
     Indication: Chronic myelomonocytic leukaemia
     Dosage: 100 MG, BID
     Route: 048
     Dates: start: 202302
  2. HYDREA [Suspect]
     Active Substance: HYDROXYUREA
     Indication: Chronic myelomonocytic leukaemia
     Dosage: 3 DOSAGE FORM, TIW
     Route: 048
     Dates: start: 201911, end: 20230330
  3. EPREX [Suspect]
     Active Substance: ERYTHROPOIETIN
     Indication: Anaemia
     Dosage: 40000 IU, QW
     Route: 058
     Dates: start: 20230215, end: 20230418

REACTIONS (1)
  - Aplasia pure red cell [Recovering/Resolving]

NARRATIVE: CASE EVENT DATE: 20230328
